FAERS Safety Report 25504198 (Version 1)
Quarter: 2025Q3

REPORT INFORMATION
  Report Type: Spontaneous
  Country: GB (occurrence: GB)
  Receive Date: 20250702
  Receipt Date: 20250702
  Transmission Date: 20251021
  Serious: Yes (Other)
  Sender: MYLAN
  Company Number: GB-MHRA-WEBRADR-202506180937044220-KVMLG

PATIENT
  Age: 53 Year
  Sex: Female
  Weight: 81 kg

DRUGS (4)
  1. ATORVASTATIN [Suspect]
     Active Substance: ATORVASTATIN
     Indication: Transient ischaemic attack
     Dosage: 40 MILLIGRAM/KILOGRAM, QD (ONCE A DAY)
     Dates: start: 20240620
  2. ATORVASTATIN [Suspect]
     Active Substance: ATORVASTATIN
     Dosage: 40 MILLIGRAM/KILOGRAM, QOD (EVERY OTHER DAY)
     Dates: end: 20241030
  3. CLOPIDOGREL [Concomitant]
     Active Substance: CLOPIDOGREL BISULFATE
     Dosage: 75 MILLIGRAM, QD (ONCE A DAY)
  4. CLOPIDOGREL [Concomitant]
     Active Substance: CLOPIDOGREL BISULFATE
     Dosage: 75 MILLIGRAM, BID

REACTIONS (3)
  - Tendon rupture [Recovered/Resolved with Sequelae]
  - Sciatica [Unknown]
  - Asthenia [Unknown]

NARRATIVE: CASE EVENT DATE: 20240930
